FAERS Safety Report 25324275 (Version 1)
Quarter: 2025Q2

REPORT INFORMATION
  Report Type: Spontaneous
  Country: US (occurrence: US)
  Receive Date: 20250516
  Receipt Date: 20250516
  Transmission Date: 20250717
  Serious: No
  Sender: TEVA
  Company Number: US-TEVA-VS-3330053

PATIENT

DRUGS (2)
  1. AJOVY [Suspect]
     Active Substance: FREMANEZUMAB-VFRM
     Indication: Product used for unknown indication
     Route: 065
     Dates: start: 202502
  2. AJOVY [Suspect]
     Active Substance: FREMANEZUMAB-VFRM

REACTIONS (2)
  - Arthralgia [Not Recovered/Not Resolved]
  - Myalgia [Not Recovered/Not Resolved]

NARRATIVE: CASE EVENT DATE: 20250101
